FAERS Safety Report 5176320-2 (Version None)
Quarter: 2006Q4

REPORT INFORMATION
  Report Type: 
  Country: None (occurrence: None)
  Receive Date: 20061130
  Receipt Date: 20061123
  Transmission Date: 20070319
  Serious: Yes (Death)
  Sender: FDA-Public Use
  Company Number: 200610114BBE

PATIENT
  Age: 68 Year
  Sex: Female
  Weight: 69 kg

DRUGS (7)
  1. GAMUNEX [Suspect]
     Dosage: SEE IMAGE
     Route: 042
     Dates: start: 20060331
  2. GAMUNEX [Suspect]
     Dosage: SEE IMAGE
     Route: 042
     Dates: start: 20060401
  3. GAMUNEX [Suspect]
  4. TYLENOL [Concomitant]
  5. STATEX [Concomitant]
  6. COLACE [Concomitant]
  7. NORFLEX [ORPHENADRINE SULFATE] [Concomitant]

REACTIONS (8)
  - BODY TEMPERATURE INCREASED [None]
  - DYSPNOEA [None]
  - INTERCOSTAL RETRACTION [None]
  - OXYGEN SATURATION DECREASED [None]
  - PNEUMONIA [None]
  - RESPIRATORY RATE INCREASED [None]
  - SEPTIC SHOCK [None]
  - UNRESPONSIVE TO STIMULI [None]
